FAERS Safety Report 9251806 (Version 1)
Quarter: 2013Q2

REPORT INFORMATION
  Report Type: Spontaneous
  Country: US (occurrence: US)
  Receive Date: 20130424
  Receipt Date: 20130424
  Transmission Date: 20140414
  Serious: No
  Sender: FDA-Public Use
  Company Number: US-PFIZER INC-2013124697

PATIENT
  Age: 68 Year
  Sex: Female

DRUGS (3)
  1. LEVOXYL [Suspect]
     Indication: HYPOTHYROIDISM
     Dosage: 100 MCG DAILY FOR 5 DAYS A WEEK AND 112 MCG DAILY FOR 2 DAYS A WEEK
     Dates: start: 2003, end: 201301
  2. LEVOXYL [Suspect]
     Dosage: 100 UG, DAILY
     Dates: start: 201301
  3. ARMOUR THYROID [Suspect]
     Indication: HYPOTHYROIDISM
     Dosage: 50 UG, UNK
     Dates: start: 2004

REACTIONS (3)
  - Product quality issue [Unknown]
  - Blood thyroid stimulating hormone decreased [Recovered/Resolved]
  - Feeling abnormal [Unknown]
